FAERS Safety Report 4490234-2 (Version None)
Quarter: 2004Q4

REPORT INFORMATION
  Report Type: 
  Country: None (occurrence: None)
  Receive Date: 20041027
  Receipt Date: 20041012
  Transmission Date: 20050328
  Serious: Yes (Death, Life-Threatening, Hospitalization)
  Sender: FDA-Public Use
  Company Number: 2004-BP-08406EX

PATIENT
  Age: 67 Year
  Sex: Female

DRUGS (3)
  1. DEXAMETHASONE [Suspect]
     Indication: MULTIPLE MYELOMA
     Dosage: CYCLIC: 40 MG/D/CYCLE (CYCLE 11), PO
     Route: 048
     Dates: start: 20020919, end: 20030730
  2. GENASENSE [Suspect]
     Indication: MULTIPLE MYELOMA
     Dosage: CYCLIC: 3160 MG/WEEK (CYCLE 12) (7 MG/KG/DAY), IV
     Route: 042
     Dates: start: 20020919, end: 20030816
  3. METOPROLOL TARTRATE [Suspect]
     Dosage: 50 MG (25 MG, 2 IN 1 D), PO
     Route: 048
     Dates: start: 20030418, end: 20030809

REACTIONS (12)
  - ACUTE MYOCARDIAL INFARCTION [None]
  - ANOXIC ENCEPHALOPATHY [None]
  - CARDIAC ARREST [None]
  - DEPRESSED LEVEL OF CONSCIOUSNESS [None]
  - FEMORAL NECK FRACTURE [None]
  - HYPOTENSION [None]
  - LOBAR PNEUMONIA [None]
  - LUNG ADENOCARCINOMA [None]
  - PNEUMOTHORAX [None]
  - PULMONARY BULLA [None]
  - RESPIRATORY DISTRESS [None]
  - SUPRAVENTRICULAR TACHYCARDIA [None]
